FAERS Safety Report 25105426 (Version 1)
Quarter: 2025Q1

REPORT INFORMATION
  Report Type: Spontaneous
  Country: US (occurrence: US)
  Receive Date: 20250321
  Receipt Date: 20250321
  Transmission Date: 20250408
  Serious: Yes (Hospitalization, Other)
  Sender: AMGEN
  Company Number: US-AMGEN-USASP2025052657

PATIENT
  Age: 75 Year
  Sex: Male

DRUGS (1)
  1. REPATHA [Suspect]
     Active Substance: EVOLOCUMAB
     Indication: Product used for unknown indication
     Dosage: 140 MILLIGRAM, Q2WK
     Route: 058

REACTIONS (9)
  - Glaucoma [Unknown]
  - Blindness unilateral [Unknown]
  - Retinal artery occlusion [Unknown]
  - Hypotension [Unknown]
  - Cardiac failure congestive [Unknown]
  - Device difficult to use [Unknown]
  - Drug dose omission by device [Unknown]
  - Angiopathy [Unknown]
  - Device use error [Unknown]

NARRATIVE: CASE EVENT DATE: 20231001
